FAERS Safety Report 9352432 (Version 1)
Quarter: 2013Q2

REPORT INFORMATION
  Report Type: Report from Study
  Country: US (occurrence: US)
  Receive Date: 20130617
  Receipt Date: 20130617
  Transmission Date: 20140414
  Serious: Yes (Hospitalization, Other)
  Sender: FDA-Public Use
  Company Number: US-US-EMD SERONO, INC.-7202757

PATIENT
  Age: 64 Year
  Sex: Female
  Weight: 72 kg

DRUGS (1)
  1. REBIF [Suspect]
     Indication: MULTIPLE SCLEROSIS
     Route: 058
     Dates: start: 20100208

REACTIONS (4)
  - Large intestinal obstruction [Recovering/Resolving]
  - Fluid retention [Recovering/Resolving]
  - Bedridden [Not Recovered/Not Resolved]
  - Injection site erythema [Unknown]
